FAERS Safety Report 20545281 (Version 1)
Quarter: 2022Q1

REPORT INFORMATION
  Report Type: Spontaneous
  Country: US (occurrence: US)
  Receive Date: 20220303
  Receipt Date: 20220303
  Transmission Date: 20220423
  Serious: No
  Sender: FDA-Public Use
  Company Number: US-ALLERGAN-2141111US

PATIENT
  Sex: Female

DRUGS (6)
  1. RESTASIS [Suspect]
     Active Substance: CYCLOSPORINE
     Indication: Dry eye
     Dosage: 2 GTT, BID
     Route: 047
     Dates: start: 2020, end: 202111
  2. THERATEARS [Concomitant]
     Active Substance: CARBOXYMETHYLCELLULOSE SODIUM
     Indication: Dry eye
     Dosage: 2 GTT, QID
  3. SOOTHE XP [Concomitant]
     Active Substance: LIGHT MINERAL OIL\MINERAL OIL
     Indication: Dry eye
     Dosage: 2 GTT, QID
  4. Eye Omega Advanced with vit D3 [Concomitant]
     Indication: Prophylaxis
     Dosage: UNK, QPM
  5. MINERALS\VITAMINS [Concomitant]
     Active Substance: MINERALS\VITAMINS
     Indication: Prophylaxis
     Dosage: UNK, BID
  6. IRON [Concomitant]
     Active Substance: IRON
     Indication: Blood iron decreased

REACTIONS (4)
  - Lacrimation increased [Recovering/Resolving]
  - Dry eye [Recovering/Resolving]
  - Eye pruritus [Recovering/Resolving]
  - Eye irritation [Recovering/Resolving]

NARRATIVE: CASE EVENT DATE: 20210101
